FAERS Safety Report 24443550 (Version 2)
Quarter: 2024Q4

REPORT INFORMATION
  Report Type: Report from Study
  Country: US (occurrence: US)
  Receive Date: 20241016
  Receipt Date: 20241017
  Transmission Date: 20250114
  Serious: No
  Sender: ROCHE
  Company Number: US-ROCHE-2135583

PATIENT
  Age: 65 Year
  Sex: Female
  Weight: 73.48 kg

DRUGS (17)
  1. RITUXAN [Suspect]
     Active Substance: RITUXIMAB
     Indication: Myositis
     Dosage: TWO ROUNDS TWO WEEKS APART
     Route: 042
     Dates: start: 2013
  2. RITUXAN [Suspect]
     Active Substance: RITUXIMAB
     Indication: Rheumatoid arthritis
     Dosage: DAY 1 AND DAY15? FREQUENCY TEXT:ON DAY 1 AND DAY 15
     Route: 042
     Dates: start: 20180502
  3. RITUXAN [Suspect]
     Active Substance: RITUXIMAB
     Indication: Rheumatoid arthritis
  4. ACTEMRA [Suspect]
     Active Substance: TOCILIZUMAB
     Indication: Rheumatoid arthritis
     Route: 042
     Dates: start: 2011, end: 2011
  5. LEVOTHYROXINE [Concomitant]
     Active Substance: LEVOTHYROXINE
  6. IRBESARTAN [Concomitant]
     Active Substance: IRBESARTAN
  7. HYDROCODONE [Concomitant]
     Active Substance: HYDROCODONE
  8. METHOCARBAMOL [Concomitant]
     Active Substance: METHOCARBAMOL
     Dosage: FREQUENCY TEXT:AS NEEDED
  9. CYCLOBENZAPRINE [Concomitant]
     Active Substance: CYCLOBENZAPRINE
  10. DEXTROAMPHETAMINE SACCHARATE, AMPHETAMINE ASPARTATE, DEXTROAMPHETAMINE [Concomitant]
     Active Substance: DEXTROAMPHETAMINE SACCHARATE, AMPHETAMINE ASPARTATE, DEXTROAMPHETAMINE SULFATE AND AMPHETAMINE SULFA
  11. DULOXETINE [Concomitant]
     Active Substance: DULOXETINE
  12. VYVANSE [Concomitant]
     Active Substance: LISDEXAMFETAMINE DIMESYLATE
  13. SYNTHROID [Concomitant]
     Active Substance: LEVOTHYROXINE SODIUM
     Indication: Hypothyroidism
  14. AVAPRO [Concomitant]
     Active Substance: IRBESARTAN
     Indication: Blood pressure measurement
  15. GABAPENTIN [Concomitant]
     Active Substance: GABAPENTIN
     Indication: Neuropathy peripheral
  16. CYMBALTA [Concomitant]
     Active Substance: DULOXETINE HYDROCHLORIDE
  17. DEXILANT [Concomitant]
     Active Substance: DEXLANSOPRAZOLE

REACTIONS (22)
  - Fall [Unknown]
  - Pain [Not Recovered/Not Resolved]
  - Peripheral swelling [Not Recovered/Not Resolved]
  - Foot deformity [Not Recovered/Not Resolved]
  - Blood cholesterol increased [Not Recovered/Not Resolved]
  - Drug ineffective [Unknown]
  - Device breakage [Unknown]
  - Swelling face [Not Recovered/Not Resolved]
  - Skin laceration [Not Recovered/Not Resolved]
  - Tooth abscess [Recovered/Resolved]
  - Rheumatoid arthritis [Not Recovered/Not Resolved]
  - Tooth disorder [Unknown]
  - Jaw disorder [Unknown]
  - Arthritis [Not Recovered/Not Resolved]
  - Dysstasia [Not Recovered/Not Resolved]
  - Malaise [Not Recovered/Not Resolved]
  - Spinal osteoarthritis [Not Recovered/Not Resolved]
  - Peroneal nerve palsy [Not Recovered/Not Resolved]
  - Contusion [Recovered/Resolved]
  - Craniofacial fracture [Not Recovered/Not Resolved]
  - Hypoaesthesia [Not Recovered/Not Resolved]
  - Paraesthesia [Not Recovered/Not Resolved]

NARRATIVE: CASE EVENT DATE: 20180101
